FAERS Safety Report 4269518-9 (Version None)
Quarter: 2004Q1

REPORT INFORMATION
  Report Type: 
  Country: None (occurrence: None)
  Receive Date: 20040112
  Receipt Date: 20040112
  Transmission Date: 20041129
  Serious: Yes (Hospitalization)
  Sender: FDA-Public Use
  Company Number: None

PATIENT
  Age: 64 Year
  Sex: Male

DRUGS (11)
  1. METOPROLOL [Suspect]
     Indication: HYPERTENSION
     Dosage: 2.5 MG BID
     Dates: start: 20020601
  2. DILTIAZEM [Suspect]
     Indication: HYPERTENSION
     Dosage: 180 MG QAM
     Dates: start: 20020916
  3. COLCHICINE [Concomitant]
  4. FUROSEMIDE [Concomitant]
  5. HYDROXYZINE [Concomitant]
  6. LISINOPRIL [Concomitant]
  7. NITROGLYCERIN [Concomitant]
  8. AVANDIA [Concomitant]
  9. PLAVIX [Concomitant]
  10. GLYBURIDE [Concomitant]
  11. ACIPHEX [Concomitant]

REACTIONS (2)
  - ATRIOVENTRICULAR BLOCK FIRST DEGREE [None]
  - SINUS BRADYCARDIA [None]
